FAERS Safety Report 14885763 (Version 1)
Quarter: 2018Q2

REPORT INFORMATION
  Report Type: Spontaneous
  Country: KR (occurrence: KR)
  Receive Date: 20180512
  Receipt Date: 20180512
  Transmission Date: 20180711
  Serious: Yes (Hospitalization, Other)
  Sender: FDA-Public Use
  Company Number: KR-GLENMARK PHARMACEUTICALS-2018GMK035161

PATIENT
  Age: 50 Year
  Sex: Female

DRUGS (6)
  1. LIDOCAINE. [Suspect]
     Active Substance: LIDOCAINE
     Indication: PAIN
     Dosage: 40 MG, UNK (INJECTANT OF THE CAUDAL BLOCK)
     Route: 065
  2. LIDOCAINE. [Suspect]
     Active Substance: LIDOCAINE
     Dosage: 5 MG, UNK (INJECTED INTO THE EPIDURAL SPACE)
     Route: 008
  3. ROPIVACAINE [Suspect]
     Active Substance: ROPIVACAINE
     Indication: BURNING SENSATION
     Dosage: 7.5 MG, UNK (INJECTANT OF THE CAUDAL BLOCK)
  4. DEXAMETHASONE. [Suspect]
     Active Substance: DEXAMETHASONE
     Indication: PAIN
     Dosage: 5 MG, UNK (INJECTANT OF THE CAUDAL BLOCK)
     Route: 065
  5. ROPIVACAINE [Suspect]
     Active Substance: ROPIVACAINE
     Dosage: 5 MG, UNK (INJECTED INTO THE EPIDURAL SPACE)
     Route: 008
  6. DEXAMETHASONE. [Suspect]
     Active Substance: DEXAMETHASONE
     Dosage: 3 MG, UNK (INJECTED INTO THE EPIDURAL SPACE)
     Route: 008

REACTIONS (1)
  - Paralysis [Recovered/Resolved]
